FAERS Safety Report 18960780 (Version 4)
Quarter: 2021Q2

REPORT INFORMATION
  Report Type: Spontaneous
  Country: CA (occurrence: CA)
  Receive Date: 20210302
  Receipt Date: 20210419
  Transmission Date: 20210717
  Serious: Yes (Other)
  Sender: FDA-Public Use
  Company Number: CA-ASTRAZENECA-2021A093930

PATIENT
  Age: 738 Month
  Sex: Female
  Weight: 74.8 kg

DRUGS (15)
  1. CANDESARTAN CILEXETIL. [Concomitant]
     Active Substance: CANDESARTAN CILEXETIL
     Dosage: 150 MG, 1X/DAY
  2. RABEPRAZOLE [Concomitant]
     Active Substance: RABEPRAZOLE
     Dosage: 150 MG, 1X/DAY
  3. MAGNESIUM CITRATE. [Concomitant]
     Active Substance: MAGNESIUM CITRATE
  4. BUPROPRION HCL [Concomitant]
     Active Substance: BUPROPION HYDROCHLORIDE
     Dosage: 150 MG, 1X/DAY
  5. PROBIOTIC [Concomitant]
     Active Substance: PROBIOTICS NOS
  6. CALCIUM UNDECYLENATE. [Concomitant]
     Active Substance: CALCIUM UNDECYLENATE
  7. OMEGA [Concomitant]
     Dosage: 150 MG, 1X/DAY
  8. PULMICORT TURBUHALER [Suspect]
     Active Substance: BUDESONIDE
     Indication: BRONCHITIS
     Dosage: TOOK A LITTLE TINY PUFF JUST TO SEE
     Route: 055
     Dates: start: 2020, end: 2020
  9. IV LIDOCAINE [Concomitant]
     Route: 042
  10. ZOPICLONE [Concomitant]
     Active Substance: ZOPICLONE
  11. MENOPAUSE FORMULA [Concomitant]
     Active Substance: HOMEOPATHICS
  12. ALVESCO [Suspect]
     Active Substance: CICLESONIDE
     Indication: BRONCHITIS
     Dosage: 200 MCG (2 PUFFS), 1X/DAY
     Route: 055
     Dates: start: 20201024
  13. PULMICORT TURBUHALER [Suspect]
     Active Substance: BUDESONIDE
     Indication: BRONCHITIS
     Dosage: 1 MCG, 2X/DAY
     Route: 055
     Dates: start: 202009, end: 2020
  14. IV MAGNESIUM [Concomitant]
     Route: 042
  15. PINAVERIUM BROMIDE [Concomitant]
     Active Substance: PINAVERIUM BROMIDE
     Dosage: 150 MG, 1X/DAY

REACTIONS (12)
  - Low density lipoprotein increased [Unknown]
  - Musculoskeletal stiffness [Unknown]
  - Muscle spasms [Unknown]
  - Lip discolouration [Unknown]
  - Blood cholesterol increased [Unknown]
  - Abdominal pain upper [Unknown]
  - Vomiting [Unknown]
  - Headache [Unknown]
  - Arthralgia [Recovered/Resolved]
  - Off label use [Recovered/Resolved]
  - Myalgia [Recovered/Resolved]
  - Dyspnoea [Recovered/Resolved]

NARRATIVE: CASE EVENT DATE: 202009
